FAERS Safety Report 23669263 (Version 1)
Quarter: 2024Q1

REPORT INFORMATION
  Report Type: Spontaneous
  Country: ES (occurrence: ES)
  Receive Date: 20240325
  Receipt Date: 20240325
  Transmission Date: 20240410
  Serious: Yes (Life-Threatening, Hospitalization)
  Sender: FDA-Public Use
  Company Number: ES-TEVA-VS-3173014

PATIENT
  Age: 53 Year
  Sex: Female

DRUGS (1)
  1. LEVOTHYROXINE [Suspect]
     Active Substance: LEVOTHYROXINE\LEVOTHYROXINE SODIUM
     Indication: Suicide attempt
     Dosage: INGESTED 75 TABLETS
     Route: 048

REACTIONS (3)
  - Toxicity to various agents [Recovering/Resolving]
  - Thyroxine increased [Recovering/Resolving]
  - Intentional overdose [Unknown]
